FAERS Safety Report 7567932-7 (Version None)
Quarter: 2011Q2

REPORT INFORMATION
  Report Type: 
  Country: None (occurrence: None)
  Receive Date: 20110616
  Receipt Date: 20110606
  Transmission Date: 20111010
  Serious: Yes (Hospitalization)
  Sender: FDA-Public Use
  Company Number: 1000021389

PATIENT
  Age: 81 Year
  Sex: Female

DRUGS (4)
  1. MEMANTINE HCL [Suspect]
     Indication: DEMENTIA ALZHEIMER'S TYPE
     Dosage: 20 MG (10 MG,2 IN 1 D),ORAL ; 100 MG (100 MG,1 IN 1 D),ORAL
     Route: 048
     Dates: start: 20110523, end: 20110526
  2. MEMANTINE HCL [Suspect]
     Indication: DEMENTIA ALZHEIMER'S TYPE
     Dosage: 20 MG (10 MG,2 IN 1 D),ORAL ; 100 MG (100 MG,1 IN 1 D),ORAL
     Route: 048
     Dates: start: 20110404, end: 20110522
  3. QUETIAPINE (QUETIAPINE) (TABLETS) (QUETIAPINE) [Concomitant]
  4. RIVASTIGMINE (RIVASTIGMINE) (TABLETS) (RIVASTIGMINE) [Concomitant]

REACTIONS (3)
  - WRONG TECHNIQUE IN DRUG USAGE PROCESS [None]
  - AGITATION [None]
  - ACCIDENTAL OVERDOSE [None]
